FAERS Safety Report 15988375 (Version 2)
Quarter: 2019Q1

REPORT INFORMATION
  Report Type: Spontaneous
  Country: ES (occurrence: ES)
  Receive Date: 20190221
  Receipt Date: 20190311
  Transmission Date: 20190418
  Serious: Yes (Other)
  Sender: FDA-Public Use
  Company Number: ES-ROCHE-2265718

PATIENT
  Age: 38 Year
  Sex: Female

DRUGS (17)
  1. DIPYRONE [Concomitant]
     Active Substance: DIPYRONE
     Indication: RENAL PAIN
     Route: 042
  2. DOLANTIN [Suspect]
     Active Substance: MEPERIDINE
     Indication: NEPHRITIC SYNDROME
  3. METAMIZOLE SODIUM [Suspect]
     Active Substance: METAMIZOLE SODIUM
     Indication: NEPHRITIC SYNDROME
     Route: 042
  4. METAMIZOLE MAGNESIUM [Suspect]
     Active Substance: METAMIZOLE MAGNESIUM
     Indication: NEPHRITIC SYNDROME
     Dosage: REPORTED AS METAMIZOLE^NORMON^
     Route: 065
  5. DOLANTIN [Suspect]
     Active Substance: MEPERIDINE
     Indication: RENAL COLIC
     Route: 065
  6. PARACETAMOL [Suspect]
     Active Substance: ACETAMINOPHEN
     Indication: NEPHRITIC SYNDROME
     Route: 065
  7. BUSCOPAN [Suspect]
     Active Substance: BUTYLSCOPOLAMINE BROMIDE
     Indication: RENAL PAIN
     Route: 065
  8. METAMIZOLE SODIUM [Suspect]
     Active Substance: METAMIZOLE SODIUM
     Indication: RENAL COLIC
     Route: 065
  9. BUSCOPAN [Suspect]
     Active Substance: BUTYLSCOPOLAMINE BROMIDE
     Indication: NEPHRITIC SYNDROME
     Route: 042
  10. BUSCOPAN [Suspect]
     Active Substance: BUTYLSCOPOLAMINE BROMIDE
     Indication: RENAL COLIC
  11. METAMIZOLE MAGNESIUM [Suspect]
     Active Substance: METAMIZOLE MAGNESIUM
     Indication: RENAL COLIC
  12. PARACETAMOL [Suspect]
     Active Substance: ACETAMINOPHEN
     Indication: RENAL COLIC
     Route: 042
  13. DICLOFENAC [Suspect]
     Active Substance: DICLOFENAC
     Indication: NEPHRITIC SYNDROME
     Route: 065
  14. DICLOFENAC SODIUM. [Suspect]
     Active Substance: DICLOFENAC SODIUM
     Indication: PAIN
     Dosage: 50 MG, BID (50 MG EVERY 12 HOURS)
     Route: 030
  15. DICLOFENAC [Suspect]
     Active Substance: DICLOFENAC
     Indication: RENAL COLIC
     Route: 030
  16. DIAZEPAM. [Suspect]
     Active Substance: DIAZEPAM
     Indication: RENAL COLIC
     Route: 042
  17. DIAZEPAM. [Suspect]
     Active Substance: DIAZEPAM
     Indication: NEPHRITIC SYNDROME
     Route: 065

REACTIONS (2)
  - Oligohydramnios [Recovered/Resolved]
  - Exposure during pregnancy [Unknown]
